FAERS Safety Report 21438119 (Version 1)
Quarter: 2022Q4

REPORT INFORMATION
  Report Type: Spontaneous
  Country: HR (occurrence: HR)
  Receive Date: 20221011
  Receipt Date: 20221011
  Transmission Date: 20230113
  Serious: Yes (Other)
  Sender: FDA-Public Use
  Company Number: HR-NOVARTISPH-NVSC2022HR228209

PATIENT
  Sex: Female

DRUGS (1)
  1. AMITRIPTYLINE [Suspect]
     Active Substance: AMITRIPTYLINE
     Indication: Product used for unknown indication
     Dosage: 10 MG, BID (10 MG IN THE MORNING AND 10 MG IN THE EVENING )
     Route: 065

REACTIONS (5)
  - Drug dependence [Unknown]
  - Panic reaction [Unknown]
  - Malaise [Unknown]
  - Anxiety [Unknown]
  - Product availability issue [Unknown]
